FAERS Safety Report 8293415 (Version 3)
Quarter: 2012Q4

REPORT INFORMATION
  Report Type: Report from Study
  Country: US (occurrence: US)
  Receive Date: 20111215
  Receipt Date: 20120905
  Transmission Date: 20130627
  Serious: Yes (Hospitalization, Other)
  Sender: FDA-Public Use
  Company Number: US-B.I. PHARMACEUTICALS,INC./RIDGEFIELD-2011-BP-27282BP

PATIENT
  Age: 67 Year
  Sex: Male
  Weight: 63.9 kg

DRUGS (5)
  1. TIOTROPIUM BROMIDE [Suspect]
     Indication: CHRONIC OBSTRUCTIVE PULMONARY DISEASE
     Dosage: 2.5 mcg
     Dates: start: 20101108, end: 20111201
  2. ALBUTEROL [Suspect]
     Indication: CHRONIC OBSTRUCTIVE PULMONARY DISEASE
     Dosage: 12.5 mg
     Route: 055
     Dates: start: 20111114, end: 20111130
  3. PRAVASTATIN [Concomitant]
     Indication: DYSLIPIDAEMIA
     Dosage: 20 mg
     Route: 048
     Dates: start: 20111115, end: 20111129
  4. ASPIRIN [Concomitant]
     Indication: PROPHYLAXIS
     Dosage: 81 mg
     Route: 048
     Dates: start: 200910, end: 20111128
  5. AXYRON [Concomitant]
     Indication: CHRONIC OBSTRUCTIVE PULMONARY DISEASE
     Route: 055
     Dates: start: 20111128

REACTIONS (4)
  - Pneumonia [Recovered/Resolved]
  - Acute myocardial infarction [Recovered/Resolved]
  - Troponin I increased [Recovered/Resolved]
  - Tachycardia [Recovered/Resolved]
